FAERS Safety Report 9518268 (Version 1)
Quarter: 2013Q3

REPORT INFORMATION
  Report Type: Spontaneous
  Country: US (occurrence: None)
  Receive Date: 20130910
  Receipt Date: 20130910
  Transmission Date: 20140515
  Serious: Yes (Other)
  Sender: FDA-Public Use
  Company Number: None

PATIENT
  Age: 71 Year
  Sex: Female
  Weight: 83.92 kg

DRUGS (6)
  1. LEXISCAN [Suspect]
  2. NORVASC [Concomitant]
  3. LIPITOR [Concomitant]
  4. HYDROCHLORAZTHIDE [Concomitant]
  5. ALEVE (NSAID) [Concomitant]
  6. VITAMIN D [Concomitant]

REACTIONS (5)
  - Hypersensitivity [None]
  - Injection site swelling [None]
  - Urticaria [None]
  - Skin discolouration [None]
  - Skin irritation [None]
